FAERS Safety Report 6029842-6 (Version None)
Quarter: 2008Q4

REPORT INFORMATION
  Report Type: 
  Country: None (occurrence: None)
  Receive Date: 20081222
  Receipt Date: 20081124
  Transmission Date: 20090506
  Serious: No
  Sender: FDA-Public Use
  Company Number: US-WYE-H06961408

PATIENT
  Sex: Female

DRUGS (6)
  1. PRISTIQ [Suspect]
     Dosage: 100 MG 1X PER 1 DAY, ORAL
     Route: 048
     Dates: start: 20081117, end: 20081123
  2. PRISTIQ [Suspect]
     Dosage: 100 MG 1X PER 1 DAY, ORAL
     Route: 048
     Dates: start: 20081124
  3. ZOLOFT [Concomitant]
  4. ENBREL [Concomitant]
  5. PREDNISONE (PEDNISONE) [Concomitant]
  6. METHOTREXATE [Concomitant]

REACTIONS (1)
  - DIZZINESS [None]
